FAERS Safety Report 20065274 (Version 2)
Quarter: 2021Q4

REPORT INFORMATION
  Report Type: Spontaneous
  Country: US (occurrence: US)
  Receive Date: 20211113
  Receipt Date: 20211123
  Transmission Date: 20220303
  Serious: No
  Sender: FDA-Public Use
  Company Number: US-CELGENE-USA-20211101378

PATIENT
  Age: 48 Year
  Sex: Female

DRUGS (4)
  1. ZEPOSIA [Suspect]
     Active Substance: OZANIMOD HYDROCHLORIDE
     Indication: Multiple sclerosis
     Dosage: .23, .46, .92 MILLIGRAM
     Route: 048
     Dates: start: 20210615
  2. PLAVIX [Concomitant]
     Active Substance: CLOPIDOGREL BISULFATE
     Indication: Laboratory test
     Dosage: UNKNOWN
     Route: 048
     Dates: start: 20211025
  3. PLATEL [Concomitant]
     Indication: Laboratory test
     Dosage: UNKNOWN
     Route: 048
     Dates: start: 20211025
  4. ASPIRIN [Concomitant]
     Active Substance: ASPIRIN
     Indication: Product used for unknown indication
     Dosage: 80 MILLIGRAM
     Route: 048
     Dates: start: 20211025

REACTIONS (5)
  - Unevaluable event [Not Recovered/Not Resolved]
  - Limb discomfort [Not Recovered/Not Resolved]
  - Plantar fasciitis [Not Recovered/Not Resolved]
  - Pain [Not Recovered/Not Resolved]
  - Fatigue [Not Recovered/Not Resolved]

NARRATIVE: CASE EVENT DATE: 20210615
